FAERS Safety Report 14541784 (Version 2)
Quarter: 2018Q1

REPORT INFORMATION
  Report Type: Spontaneous
  Country: DE (occurrence: DE)
  Receive Date: 20180216
  Receipt Date: 20180223
  Transmission Date: 20180509
  Serious: Yes (Hospitalization, Disabling)
  Sender: FDA-Public Use
  Company Number: DE-TEVA-2018-DE-858284

PATIENT
  Age: 57 Year
  Sex: Male
  Weight: 88 kg

DRUGS (7)
  1. CIPRALEX [Suspect]
     Active Substance: ESCITALOPRAM OXALATE
     Indication: DEPRESSION
     Dosage: 5 MILLIGRAM DAILY;
     Route: 065
     Dates: end: 20160526
  2. VALPROIC ACID. [Suspect]
     Active Substance: VALPROIC ACID
     Indication: BIPOLAR DISORDER
     Dosage: 1800 MILLIGRAM DAILY;
     Route: 065
  3. CEFAZOLIN [Concomitant]
     Active Substance: CEFAZOLIN
     Indication: ANTIBIOTIC PROPHYLAXIS
     Dosage: 2 G, UNK
     Route: 065
     Dates: start: 20160531
  4. ASPIRIN. [Concomitant]
     Active Substance: ASPIRIN
     Route: 065
  5. XARELTO [Concomitant]
     Active Substance: RIVAROXABAN
     Indication: THROMBOSIS PROPHYLAXIS
     Dosage: 10 MILLIGRAM DAILY;
     Route: 065
     Dates: start: 20160531
  6. IBUPROFEN. [Concomitant]
     Active Substance: IBUPROFEN
     Indication: PAIN
     Dosage: 2400 MILLIGRAM DAILY;
     Route: 065
  7. NOVAMINSULFON [Concomitant]
     Active Substance: METAMIZOLE
     Indication: PAIN
     Dosage: 1500 MILLIGRAM DAILY;
     Route: 065

REACTIONS (11)
  - Haemorrhage [Unknown]
  - Haematoma [Unknown]
  - Nerve injury [Unknown]
  - Diarrhoea [Unknown]
  - Walking aid user [Not Recovered/Not Resolved]
  - Back pain [Unknown]
  - Gait disturbance [Not Recovered/Not Resolved]
  - Myalgia [Unknown]
  - Chest pain [Not Recovered/Not Resolved]
  - Muscle disorder [Unknown]
  - Staphylococcal infection [Unknown]
